FAERS Safety Report 16899853 (Version 1)
Quarter: 2019Q4

REPORT INFORMATION
  Report Type: Spontaneous
  Country: US (occurrence: US)
  Receive Date: 20191008
  Receipt Date: 20191008
  Transmission Date: 20200122
  Serious: Yes (Other)
  Sender: FDA-Public Use
  Company Number: None

PATIENT
  Age: 55 Year
  Sex: Male
  Weight: 126 kg

DRUGS (4)
  1. VERAPAMIL [Suspect]
     Active Substance: VERAPAMIL HYDROCHLORIDE
     Indication: HYPERTENSION
     Route: 048
  2. SPIRONOLACTONE. [Suspect]
     Active Substance: SPIRONOLACTONE
     Indication: HYPERTENSION
     Route: 048
  3. OMEPRAZOLE 20MG OTC [Concomitant]
  4. FLUOXETINE 25MG [Concomitant]

REACTIONS (3)
  - Weight increased [None]
  - Hypogonadism [None]
  - Hyperprolactinaemia [None]

NARRATIVE: CASE EVENT DATE: 20190914
